FAERS Safety Report 4337500-9 (Version None)
Quarter: 2004Q2

REPORT INFORMATION
  Report Type: 
  Country: None (occurrence: None)
  Receive Date: 20040412
  Receipt Date: 20040412
  Transmission Date: 20050107
  Serious: Yes (Disabling)
  Sender: FDA-Public Use
  Company Number: None

PATIENT
  Sex: Male
  Weight: 109.7705 kg

DRUGS (2)
  1. LEVAQUIN [Suspect]
     Indication: BRONCHITIS
     Dosage: 500 MG 2 X DAY/7 ORAL
     Route: 048
     Dates: start: 20030904, end: 20030911
  2. LEVAQUIN [Suspect]
     Indication: PNEUMONIA
     Dosage: 500 MG 2 X DAY/7 ORAL
     Route: 048
     Dates: start: 20030904, end: 20030911

REACTIONS (7)
  - ANXIETY [None]
  - DEPRESSION [None]
  - MIGRAINE [None]
  - NERVOUS SYSTEM DISORDER [None]
  - NEUROPATHY PERIPHERAL [None]
  - PAIN [None]
  - TENDON DISORDER [None]
